FAERS Safety Report 8708917 (Version 2)
Quarter: 2012Q4

REPORT INFORMATION
  Report Type: 
  Country: JP (occurrence: JP)
  Receive Date: 20120806
  Receipt Date: 20120921
  Transmission Date: 20130627
  Serious: Yes (Hospitalization, Other)
  Sender: FDA-Public Use
  Company Number: JP-ROCHE-1094881

PATIENT
  Age: 76 Year
  Sex: Female
  Weight: 63 kg

DRUGS (7)
  1. TAMIFLU [Suspect]
     Indication: INFLUENZA
     Route: 048
     Dates: start: 20120723, end: 20120723
  2. TAMIFLU [Suspect]
     Indication: INFLUENZA
     Route: 048
     Dates: start: 20120723, end: 20120725
  3. ENALAPRIL MALEATE [Concomitant]
     Indication: HYPERTENSION
     Dosage: Drug reported as CALNATE
     Route: 048
     Dates: start: 20060528
  4. MAIBASTAN [Concomitant]
     Indication: DYSLIPIDAEMIA
     Route: 048
     Dates: start: 20100222
  5. TOWATHIEM [Concomitant]
     Indication: PYREXIA
     Route: 048
     Dates: start: 20120723, end: 20120728
  6. CLARITHROMYCIN [Concomitant]
     Indication: PHARYNGITIS
     Route: 048
     Dates: start: 20120723, end: 20120726
  7. ETIZOLAM [Concomitant]
     Indication: INSOMNIA
     Route: 048
     Dates: start: 20120723, end: 20120727

REACTIONS (6)
  - Altered state of consciousness [Recovered/Resolved]
  - Memory impairment [Recovered/Resolved]
  - Abnormal behaviour [Recovered/Resolved]
  - Fall [Recovering/Resolving]
  - Radius fracture [Recovering/Resolving]
  - Pneumonia viral [Recovering/Resolving]
